FAERS Safety Report 5963074-2 (Version None)
Quarter: 2008Q4

REPORT INFORMATION
  Report Type: 
  Country: None (occurrence: None)
  Receive Date: 20081120
  Receipt Date: 20081117
  Transmission Date: 20090506
  Serious: Yes (Life-Threatening, Hospitalization, Disabling)
  Sender: FDA-Public Use
  Company Number: SP02059

PATIENT
  Age: 55 Year
  Sex: Female
  Weight: 74.8435 kg

DRUGS (6)
  1. OSMOPREP [Suspect]
     Indication: COLONOSCOPY
     Dosage: 48 GM, ORAL
     Route: 048
     Dates: start: 20080924, end: 20080924
  2. LIPITOR [Concomitant]
  3. METOPROLOL TARTRATE [Concomitant]
  4. TRAMADOL HCL [Concomitant]
  5. CELECOXIB [Concomitant]
  6. CYCLOBENZAPRINE HCL [Concomitant]

REACTIONS (9)
  - AMNESIA [None]
  - BLOOD PHOSPHORUS ABNORMAL [None]
  - BLOOD POTASSIUM ABNORMAL [None]
  - ELECTROLYTE IMBALANCE [None]
  - HEADACHE [None]
  - HYPONATRAEMIA [None]
  - LOSS OF CONSCIOUSNESS [None]
  - SINUS DISORDER [None]
  - SWELLING [None]
